FAERS Safety Report 4647477-4 (Version None)
Quarter: 2005Q2

REPORT INFORMATION
  Report Type: 
  Country: None (occurrence: None)
  Receive Date: 20050428
  Receipt Date: 20050415
  Transmission Date: 20051028
  Serious: Yes (Other)
  Sender: FDA-Public Use
  Company Number: 2186318

PATIENT
  Age: 66 Year
  Sex: Female
  Weight: 70.5 kg

DRUGS (6)
  1. REMIFEMIN [Suspect]
     Route: 048
     Dates: start: 20010101
  2. ESTRADIOL [Suspect]
     Indication: HORMONE REPLACEMENT THERAPY
  3. NORETHINDRONE [Suspect]
     Indication: HORMONE REPLACEMENT THERAPY
     Dosage: 5MG PER DAY
  4. PREVACID [Concomitant]
  5. LEVOXYL [Concomitant]
     Indication: HYPOTHYROIDISM
  6. ATENOLOL [Concomitant]
     Indication: HYPERTENSION

REACTIONS (6)
  - DRUG INEFFECTIVE [None]
  - HAEMORRHAGE [None]
  - MENOPAUSAL SYMPTOMS [None]
  - POSTMENOPAUSAL HAEMORRHAGE [None]
  - UTERINE ENLARGEMENT [None]
  - UTERINE POLYP [None]
